FAERS Safety Report 4873339-3 (Version None)
Quarter: 2006Q1

REPORT INFORMATION
  Report Type: 
  Country: None (occurrence: None)
  Receive Date: 20060105
  Receipt Date: 20051230
  Transmission Date: 20060701
  Serious: Yes (Other)
  Sender: FDA-Public Use
  Company Number: US-JNJFOC-20060100528

PATIENT
  Sex: Male
  Weight: 93.44 kg

DRUGS (4)
  1. TOPAMAX [Suspect]
     Dosage: 25 MG ONCE IN MORNING; 75 MG (THREE 25 MG TABLETS) IN EVENING
     Route: 048
     Dates: start: 20000101, end: 20051228
  2. ELAVIL [Concomitant]
     Indication: SLEEP DISORDER THERAPY
     Route: 048
  3. MORPHINE SULFATE [Concomitant]
     Indication: BREAKTHROUGH PAIN
     Dosage: (UP TO ONE DAILY AS NEEDED)
     Route: 048
  4. DURAGESIC [Concomitant]
     Route: 062

REACTIONS (3)
  - ANAEMIA [None]
  - LEUKOPENIA [None]
  - SURGERY [None]
